FAERS Safety Report 14071152 (Version 1)
Quarter: 2017Q4

REPORT INFORMATION
  Report Type: Spontaneous
  Country: US (occurrence: US)
  Receive Date: 20171010
  Receipt Date: 20171010
  Transmission Date: 20180321
  Serious: No
  Sender: FDA-Public Use
  Company Number: US-JNJFOC-20170714829

PATIENT
  Age: 8 Year
  Sex: Female
  Weight: 22.68 kg

DRUGS (2)
  1. CHILDRENS MOTRIN [Suspect]
     Active Substance: IBUPROFEN
     Route: 048
  2. CHILDRENS MOTRIN [Suspect]
     Active Substance: IBUPROFEN
     Indication: UPPER LIMB FRACTURE
     Route: 048
     Dates: start: 20170716, end: 20170717

REACTIONS (2)
  - Product container issue [Unknown]
  - Throat irritation [Recovered/Resolved]

NARRATIVE: CASE EVENT DATE: 20170716
